FAERS Safety Report 15833811 (Version 3)
Quarter: 2021Q1

REPORT INFORMATION
  Report Type: Spontaneous
  Country: IT (occurrence: IT)
  Receive Date: 20190116
  Receipt Date: 20210223
  Transmission Date: 20210419
  Serious: Yes (Congenital Anomaly, Other)
  Sender: FDA-Public Use
  Company Number: PHHY2019IT005489

PATIENT
  Weight: 2.97 kg

DRUGS (1)
  1. PARACETAMOL [Suspect]
     Active Substance: ACETAMINOPHEN
     Indication: FOETAL EXPOSURE DURING PREGNANCY
     Dosage: MATERNAL DOSE: 1000 MG, UNK
     Route: 064

REACTIONS (10)
  - Ductus arteriosus stenosis foetal [Unknown]
  - Foetal heart rate increased [Unknown]
  - Atrial septal defect [Unknown]
  - Ductus arteriosus premature closure [Recovered/Resolved]
  - Pericardial effusion [Unknown]
  - Cardiac septal hypertrophy [Unknown]
  - Tricuspid valve incompetence [Unknown]
  - Premature baby [Unknown]
  - Foetal exposure during pregnancy [Unknown]
  - Cardiomegaly [Unknown]
